FAERS Safety Report 4736683-6 (Version None)
Quarter: 2005Q3

REPORT INFORMATION
  Report Type: 
  Country: None (occurrence: None)
  Receive Date: 20050803
  Receipt Date: 20050719
  Transmission Date: 20060218
  Serious: Yes (Hospitalization)
  Sender: FDA-Public Use
  Company Number: 2005P1000103

PATIENT

DRUGS (1)
  1. CARDENE [Suspect]
     Dosage: IV
     Route: 042

REACTIONS (1)
  - INFUSION SITE REACTION [None]
